FAERS Safety Report 6814978-X (Version None)
Quarter: 2010Q2

REPORT INFORMATION
  Report Type: 
  Country: None (occurrence: None)
  Receive Date: 20100628
  Receipt Date: 20100615
  Transmission Date: 20101027
  Serious: Yes (Other)
  Sender: FDA-Public Use
  Company Number: AUR-APL-2010-01409

PATIENT
  Age: 45 Year
  Sex: Female
  Weight: 68.0396 kg

DRUGS (1)
  1. CEFUROXIME [Suspect]
     Indication: INFECTION
     Dosage: 500MG, BID,
     Dates: start: 20100521, end: 20100521

REACTIONS (4)
  - CHOKING [None]
  - FOREIGN BODY [None]
  - PRODUCT COATING ISSUE [None]
  - PRODUCT SOLUBILITY ABNORMAL [None]
